FAERS Safety Report 6147843-4 (Version None)
Quarter: 2009Q2

REPORT INFORMATION
  Report Type: 
  Country: None (occurrence: None)
  Receive Date: 20090408
  Receipt Date: 20090331
  Transmission Date: 20091009
  Serious: Yes (Hospitalization, Other)
  Sender: FDA-Public Use
  Company Number: DE-WYE-H08767609

PATIENT
  Sex: Male

DRUGS (28)
  1. SIROLIMUS [Suspect]
     Indication: PROPHYLAXIS AGAINST TRANSPLANT REJECTION
     Route: 048
     Dates: start: 20031213, end: 20040311
  2. TACROLIMUS [Suspect]
     Indication: PROPHYLAXIS AGAINST TRANSPLANT REJECTION
     Route: 048
     Dates: start: 20040313
  3. PREDNISOLONE [Suspect]
     Indication: PROPHYLAXIS AGAINST TRANSPLANT REJECTION
     Dosage: ^250 MG 2 X PER 1 TOTAL^
     Route: 042
     Dates: start: 20031213
  4. PREDNISOLONE [Suspect]
     Dosage: VARIABLE DOSES SWITCHES BACK AND FORTH FROM INTRAVENOUS TO ORAL
     Route: 048
  5. FLUVASTATIN SODIUM [Concomitant]
     Dosage: DOSE AND FREQUENCY NOT SPECIFIED
     Route: 065
     Dates: start: 20031216
  6. FRAGMIN [Concomitant]
     Dosage: DOSE AND FREQUENCY NOT SPECIFIED
     Route: 065
     Dates: start: 20040212, end: 20040915
  7. FUROSEMIDE [Concomitant]
     Dosage: DOSE AND FREQUENCY NOT SPECIFIED
     Route: 065
     Dates: start: 20040119
  8. GLIQUIDONE [Concomitant]
     Dosage: DOSE AND FREQUENCY NOT SPECIFIED
     Route: 065
     Dates: start: 20040211
  9. KEPINOL [Concomitant]
     Dosage: DOSE AND FREQUENCY NOT SPECIFIED
     Route: 065
     Dates: start: 20031214, end: 20040611
  10. METOPROLOL TARTRATE [Concomitant]
     Dosage: DOSE AND FREQUENCY NOT SPECIFIED
     Route: 065
     Dates: start: 20040112, end: 20040805
  11. METRONIDAZOLE [Concomitant]
     Dosage: DOSE AND FREQUENCY NOT SPECIFIED
     Route: 065
     Dates: start: 20040131, end: 20040206
  12. PRAVASTATIN SODIUM [Concomitant]
     Dosage: DOSE AND FREQUENCY NOT SPECIFIED
     Route: 065
     Dates: start: 20031212, end: 20031217
  13. RISEDRONATE SODIUM [Concomitant]
     Dosage: DOSE AND FREQUENCY NOT SPECIFIED
     Route: 065
     Dates: start: 20031215
  14. AMPICILLIN AND SULBACTAM [Concomitant]
     Dosage: DOSE AND FREQUENCY NOT SPECIFIED
     Route: 065
     Dates: start: 20031213
  15. UNACID PD ORAL [Concomitant]
     Dosage: DOSE AND FREQUENCY NOT SPECIFIED
     Route: 048
     Dates: start: 20031215, end: 20031224
  16. TAZOBAC [Concomitant]
     Dosage: DOSE AND FREQUENCY NOT SPECIFIED
     Route: 042
     Dates: start: 20040131, end: 20040209
  17. AMLODIPINE BESYLATE [Concomitant]
     Dosage: DOSE AND FREQUENCY NOT SPECIFIED
     Route: 065
     Dates: start: 20040119
  18. AMPHOTERICIN B [Concomitant]
     Dosage: DOSE AND FREQUENCY NOT SPECIFIED
     Route: 065
     Dates: start: 20031215, end: 20040825
  19. EUTHYROX [Concomitant]
     Dosage: DOSE AND FREQUENCY NOT SPECIFIED
     Route: 065
     Dates: start: 20031213
  20. ALNA [Concomitant]
     Dosage: DOSE AND FREQUENCY NOT SPECIFIED
     Route: 065
     Dates: start: 20031215
  21. DACLIZUMAB [Suspect]
     Indication: PROPHYLAXIS AGAINST TRANSPLANT REJECTION
     Dosage: 212 MG (SINGLE DOSE)
     Route: 042
     Dates: start: 20031213
  22. DACLIZUMAB [Suspect]
     Route: 042
     Dates: start: 20031227, end: 20040209
  23. MYCOPHENOLATE MOFETIL [Suspect]
     Indication: PROPHYLAXIS AGAINST TRANSPLANT REJECTION
     Route: 048
     Dates: start: 20031213, end: 20031213
  24. MYCOPHENOLATE MOFETIL [Suspect]
     Route: 048
     Dates: start: 20031214, end: 20040131
  25. MYCOPHENOLATE MOFETIL [Suspect]
     Route: 048
     Dates: start: 20040205, end: 20040210
  26. MYCOPHENOLATE MOFETIL [Suspect]
     Route: 048
     Dates: start: 20040211, end: 20040315
  27. MYCOPHENOLATE MOFETIL [Suspect]
     Dates: start: 20040316, end: 20040319
  28. MYCOPHENOLATE MOFETIL [Suspect]
     Dosage: PATIENT HAD SEVERAL SUBSEQUENT DOSAGE ALTERATIONS
     Dates: start: 20040430

REACTIONS (3)
  - ILEUS [None]
  - SMALL INTESTINE GANGRENE [None]
  - THERAPEUTIC AGENT TOXICITY [None]
